FAERS Safety Report 9243088 (Version 2)
Quarter: 2013Q2

REPORT INFORMATION
  Report Type: Spontaneous
  Country: FR (occurrence: FR)
  Receive Date: 20130419
  Receipt Date: 20130515
  Transmission Date: 20140414
  Serious: Yes (Other)
  Sender: FDA-Public Use
  Company Number: FR-ABBOTT-13P-056-1078713-00

PATIENT
  Age: 52 Year
  Sex: Female
  Weight: 73 kg

DRUGS (1)
  1. HUMIRA [Suspect]
     Indication: CROHN^S DISEASE
     Dates: start: 201104, end: 201302

REACTIONS (1)
  - Cervix carcinoma [Unknown]
